FAERS Safety Report 20891208 (Version 1)
Quarter: 2022Q2

REPORT INFORMATION
  Report Type: Spontaneous
  Country: US (occurrence: US)
  Receive Date: 20220530
  Receipt Date: 20220530
  Transmission Date: 20220721
  Serious: Yes (Other)
  Sender: FDA-Public Use
  Company Number: US-PFIZER INC-202200755147

PATIENT
  Age: 83 Year
  Sex: Male

DRUGS (1)
  1. XELJANZ XR [Suspect]
     Active Substance: TOFACITINIB CITRATE
     Dosage: 11 MG
     Dates: start: 202205

REACTIONS (6)
  - Pericardial effusion [Unknown]
  - Systemic lupus erythematosus [Unknown]
  - Thrombosis [Unknown]
  - Pulmonary oedema [Unknown]
  - Pain [Unknown]
  - Peripheral swelling [Unknown]
